FAERS Safety Report 25207247 (Version 1)
Quarter: 2025Q2

REPORT INFORMATION
  Report Type: Spontaneous
  Country: GB (occurrence: GB)
  Receive Date: 20250417
  Receipt Date: 20250417
  Transmission Date: 20250717
  Serious: Yes (Disabling, Other)
  Sender: RANBAXY
  Company Number: GB-MHRA-TPP842884C3376743YC1743708187736

PATIENT
  Age: 32 Year
  Sex: Female
  Weight: 73 kg

DRUGS (14)
  1. RISPERIDONE [Suspect]
     Active Substance: RISPERIDONE
     Indication: Adverse drug reaction
     Route: 065
     Dates: start: 20250120, end: 20250305
  2. BRANCICO [Concomitant]
     Indication: Ill-defined disorder
     Route: 065
     Dates: start: 20250109, end: 20250217
  3. DIAZEPAM [Concomitant]
     Active Substance: DIAZEPAM
     Indication: Ill-defined disorder
     Route: 065
     Dates: start: 20250227, end: 20250327
  4. QUETIAPINE [Concomitant]
     Active Substance: QUETIAPINE
     Indication: Ill-defined disorder
     Route: 065
     Dates: start: 20250121, end: 20250123
  5. NITROFURANTOIN [Concomitant]
     Active Substance: NITROFURANTOIN
     Indication: Ill-defined disorder
     Route: 065
     Dates: start: 20250228, end: 20250303
  6. CLOTRIMAZOLE [Concomitant]
     Active Substance: CLOTRIMAZOLE
     Indication: Ill-defined disorder
     Route: 065
     Dates: start: 20250315, end: 20250325
  7. BIQUELLE [Concomitant]
     Indication: Ill-defined disorder
     Route: 065
     Dates: start: 20240125, end: 20250109
  8. CITALOPRAM [Concomitant]
     Active Substance: CITALOPRAM
     Indication: Ill-defined disorder
     Route: 065
     Dates: start: 20240125
  9. INVITA [Concomitant]
     Indication: Ill-defined disorder
     Route: 065
     Dates: start: 20240125
  10. LORAZEPAM [Concomitant]
     Active Substance: LORAZEPAM
     Indication: Ill-defined disorder
     Route: 065
     Dates: start: 20240125
  11. VALPROATE SODIUM [Concomitant]
     Active Substance: VALPROATE SODIUM
     Indication: Ill-defined disorder
     Route: 065
     Dates: start: 20240125
  12. LEVOTHYROXINE [Concomitant]
     Active Substance: LEVOTHYROXINE
     Indication: Ill-defined disorder
     Route: 065
     Dates: start: 20240709
  13. ZEROBASE [Concomitant]
     Indication: Ill-defined disorder
     Route: 065
     Dates: start: 20240828
  14. DESOGESTREL [Concomitant]
     Active Substance: DESOGESTREL
     Indication: Ill-defined disorder
     Route: 065
     Dates: start: 20241230

REACTIONS (5)
  - Dysarthria [Recovered/Resolved]
  - Restlessness [Recovered/Resolved]
  - Drooling [Recovered/Resolved]
  - Joint stiffness [Recovered/Resolved]
  - Poor quality sleep [Recovered/Resolved]

NARRATIVE: CASE EVENT DATE: 20250204
